FAERS Safety Report 10610352 (Version 2)
Quarter: 2014Q4

REPORT INFORMATION
  Report Type: Spontaneous
  Country: US (occurrence: US)
  Receive Date: 20141126
  Receipt Date: 20141212
  Transmission Date: 20150529
  Serious: Yes (Other)
  Sender: FDA-Public Use
  Company Number: US-SHIRE-US201408187

PATIENT
  Sex: Female

DRUGS (3)
  1. LIALDA [Suspect]
     Active Substance: MESALAMINE
     Dosage: 1.2 G, 1X/DAY:QD
     Route: 048
     Dates: start: 2014
  2. LIALDA [Suspect]
     Active Substance: MESALAMINE
     Indication: COLITIS ULCERATIVE
     Dosage: 1.2 G, 1X/DAY:QD
     Route: 048
     Dates: start: 201410, end: 201410
  3. LIALDA [Suspect]
     Active Substance: MESALAMINE
     Dosage: 2.4 G (TWO 1.2 G), UNKNOWN (A DAY)
     Route: 048
     Dates: start: 201410, end: 2014

REACTIONS (6)
  - Inflammation [Recovered/Resolved]
  - Incorrect dose administered [Not Recovered/Not Resolved]
  - Haemorrhage [Recovered/Resolved]
  - Drug ineffective [Not Recovered/Not Resolved]
  - Diarrhoea [Recovered/Resolved]
  - Product quality issue [Unknown]

NARRATIVE: CASE EVENT DATE: 2014
